FAERS Safety Report 15616525 (Version 2)
Quarter: 2019Q1

REPORT INFORMATION
  Report Type: Spontaneous
  Country: US (occurrence: US)
  Receive Date: 20181114
  Receipt Date: 20190205
  Transmission Date: 20190417
  Serious: No
  Sender: FDA-Public Use
  Company Number: US-009507513-1811USA000529

PATIENT
  Age: 29 Year
  Sex: Female
  Weight: 82.09 kg

DRUGS (2)
  1. NEXPLANON [Suspect]
     Active Substance: ETONOGESTREL
     Indication: CONTRACEPTION
     Dosage: 1 DOSAGE FORM, EVERY 3 YEARS, RIGHT ARM
     Route: 059
     Dates: start: 20180723, end: 20180928
  2. LEXAPRO [Concomitant]
     Active Substance: ESCITALOPRAM OXALATE
     Dosage: 1 TABLET, DAILY
     Route: 048

REACTIONS (9)
  - Arthralgia [Recovered/Resolved]
  - Implant site fibrosis [Recovered/Resolved]
  - Limb discomfort [Recovered/Resolved]
  - Implant site pain [Recovered/Resolved]
  - Complication of device removal [Recovered/Resolved]
  - Device deployment issue [Recovered/Resolved]
  - Adverse event [Unknown]
  - Pain in extremity [Recovered/Resolved]
  - Mobility decreased [Recovered/Resolved]

NARRATIVE: CASE EVENT DATE: 2018
